FAERS Safety Report 6727923-2 (Version None)
Quarter: 2010Q2

REPORT INFORMATION
  Report Type: 
  Country: None (occurrence: None)
  Receive Date: 20100517
  Receipt Date: 20100511
  Transmission Date: 20101027
  Serious: Yes (Hospitalization)
  Sender: FDA-Public Use
  Company Number: JP-ABBOTT-10P-087-0637660-00

PATIENT
  Age: 70 Year
  Sex: Male

DRUGS (15)
  1. LEUPROLIDE ACETATE [Suspect]
     Indication: PROSTATE CANCER STAGE IV
     Route: 058
     Dates: start: 20080423, end: 20081008
  2. BASEN [Concomitant]
     Indication: DIABETES MELLITUS
     Route: 048
  3. BICALUTAMIDE [Concomitant]
     Indication: PROSTATE CANCER STAGE IV
     Route: 048
     Dates: start: 20080324
  4. LASIX [Concomitant]
     Indication: CARDIAC FAILURE
     Route: 048
  5. ARTIST [Concomitant]
     Indication: CARDIAC FAILURE
     Route: 048
  6. WARFARIN [Concomitant]
     Indication: ATRIAL FIBRILLATION
     Route: 048
  7. ASPIRIN [Concomitant]
     Indication: ATRIAL FIBRILLATION
     Route: 048
  8. ZESTRIL [Concomitant]
     Indication: HYPERTENSION
     Route: 048
  9. SIMVASTATIN [Concomitant]
     Indication: HYPERLIPIDAEMIA
     Route: 048
  10. ALDACTONE [Concomitant]
     Indication: CARDIAC FAILURE
     Route: 048
  11. MELBIN [Concomitant]
     Indication: DIABETES MELLITUS
     Route: 048
  12. ALOSITOL [Concomitant]
     Indication: HYPERURICAEMIA
     Route: 048
  13. GASTER D [Concomitant]
     Indication: GASTRITIS
     Route: 048
  14. FRANDOL TAPE S [Concomitant]
     Indication: ANGINA PECTORIS
     Route: 062
  15. GLYBURIDE [Concomitant]
     Indication: DIABETES MELLITUS
     Route: 048

REACTIONS (5)
  - HOSPITALISATION [None]
  - INJECTION SITE ERYTHEMA [None]
  - INJECTION SITE INDURATION [None]
  - INJECTION SITE SWELLING [None]
  - INJECTION SITE WARMTH [None]
